FAERS Safety Report 4600622-9 (Version None)
Quarter: 2005Q1

REPORT INFORMATION
  Report Type: 
  Country: None (occurrence: None)
  Receive Date: 20050127
  Receipt Date: 20041011
  Transmission Date: 20050727
  Serious: No
  Sender: FDA-Public Use
  Company Number: USA041080745

PATIENT
  Age: 47 Year
  Sex: Male

DRUGS (2)
  1. STRATTERA [Suspect]
     Indication: ATTENTION DEFICIT/HYPERACTIVITY DISORDER
     Dosage: 40 MG/2 DAY
  2. GENERIC GENSIBROSIL [Concomitant]

REACTIONS (2)
  - EXCITABILITY [None]
  - SOMNOLENCE [None]
